FAERS Safety Report 24937796 (Version 1)
Quarter: 2025Q1

REPORT INFORMATION
  Report Type: Report from Study
  Country: US (occurrence: US)
  Receive Date: 20250206
  Receipt Date: 20250206
  Transmission Date: 20250409
  Serious: Yes (Other)
  Sender: ABBVIE
  Company Number: US-ABBVIE-6116652

PATIENT
  Sex: Female

DRUGS (1)
  1. RINVOQ [Suspect]
     Active Substance: UPADACITINIB
     Indication: Rheumatoid arthritis
     Route: 048

REACTIONS (5)
  - Foot deformity [Unknown]
  - Vertebral column mass [Unknown]
  - Joint swelling [Unknown]
  - Hand deformity [Unknown]
  - Pain in extremity [Not Recovered/Not Resolved]
